FAERS Safety Report 8682894 (Version 2)
Quarter: 2015Q3

REPORT INFORMATION
  Report Type: Report from Study
  Country: US (occurrence: US)
  Receive Date: 20120725
  Receipt Date: 20150929
  Transmission Date: 20151125
  Serious: Yes (Hospitalization)
  Sender: FDA-Public Use
  Company Number: US-ROCHE-1091619

PATIENT
  Sex: Female
  Weight: 115 kg

DRUGS (12)
  1. LISINOPRIL. [Concomitant]
     Active Substance: LISINOPRIL
  2. XOLAIR [Suspect]
     Active Substance: OMALIZUMAB
     Indication: ASTHMA
     Route: 058
  3. HYDROCHLOROTHIAZIDE. [Concomitant]
     Active Substance: HYDROCHLOROTHIAZIDE
  4. PREDNISONE. [Concomitant]
     Active Substance: PREDNISONE
     Route: 065
  5. ADVAIR HFA [Concomitant]
     Active Substance: FLUTICASONE PROPIONATE\SALMETEROL XINAFOATE
     Dosage: DOSE: 500/50
     Route: 065
  6. LASIX [Concomitant]
     Active Substance: FUROSEMIDE
  7. SINGULAIR [Concomitant]
     Active Substance: MONTELUKAST SODIUM
     Route: 065
  8. LIDOCAINE. [Concomitant]
     Active Substance: LIDOCAINE
  9. LEVAQUIN [Concomitant]
     Active Substance: LEVOFLOXACIN
  10. THEOPHYLLINE [Concomitant]
     Active Substance: THEOPHYLLINE ANHYDROUS
     Route: 065
  11. LORTAB (UNITED STATES) [Concomitant]
     Route: 048
  12. METFORMIN [Concomitant]
     Active Substance: METFORMIN HYDROCHLORIDE
     Route: 065

REACTIONS (9)
  - Drug dose omission [Unknown]
  - Rhonchi [Unknown]
  - Chronic sinusitis [Unknown]
  - Oedema [Unknown]
  - Malaise [Unknown]
  - Pulmonary function test decreased [Unknown]
  - Asthma [Unknown]
  - Wheezing [Unknown]
  - Blood creatinine increased [Unknown]
